FAERS Safety Report 6359520-5 (Version None)
Quarter: 2009Q3

REPORT INFORMATION
  Report Type: 
  Country: None (occurrence: None)
  Receive Date: 20090917
  Receipt Date: 20090908
  Transmission Date: 20100115
  Serious: Yes (Life-Threatening)
  Sender: FDA-Public Use
  Company Number: US-BAXTER-2009BH014003

PATIENT
  Age: 26 Year
  Sex: Female

DRUGS (6)
  1. FENTANYL CITRATE [Suspect]
     Indication: SPINAL ANAESTHESIA
     Route: 024
  2. FENTANYL CITRATE [Suspect]
     Indication: OFF LABEL USE
     Route: 024
  3. LIDOCAINE [Suspect]
     Indication: SPINAL ANAESTHESIA
     Route: 024
  4. DEXTROSE [Suspect]
     Indication: SPINAL ANAESTHESIA
     Route: 024
  5. TERBUTALINE SULFATE [Concomitant]
     Indication: DRUG USE FOR UNKNOWN INDICATION
     Route: 065
  6. VITAMIN TAB [Concomitant]
     Indication: VITAMIN SUPPLEMENTATION
     Route: 065

REACTIONS (1)
  - SUBDURAL HAEMATOMA [None]
